FAERS Safety Report 23805062 (Version 1)
Quarter: 2024Q2

REPORT INFORMATION
  Report Type: Spontaneous
  Country: PT (occurrence: PT)
  Receive Date: 20240502
  Receipt Date: 20240502
  Transmission Date: 20240716
  Serious: Yes (Hospitalization, Other)
  Sender: FDA-Public Use
  Company Number: PT-VANTIVE-2024VAN016350

PATIENT
  Sex: Male

DRUGS (23)
  1. EXTRANEAL [Suspect]
     Active Substance: CALCIUM CHLORIDE\ICODEXTRIN\MAGNESIUM CHLORIDE\SODIUM CHLORIDE\SODIUM LACTATE
     Dosage: UNK
     Route: 033
     Dates: start: 20190814
  2. EXTRANEAL [Suspect]
     Active Substance: CALCIUM CHLORIDE\ICODEXTRIN\MAGNESIUM CHLORIDE\SODIUM CHLORIDE\SODIUM LACTATE
     Dosage: 1 EXCHANGE
     Route: 033
     Dates: start: 202312
  3. EXTRANEAL [Suspect]
     Active Substance: CALCIUM CHLORIDE\ICODEXTRIN\MAGNESIUM CHLORIDE\SODIUM CHLORIDE\SODIUM LACTATE
     Dosage: 1 EXCHANGE
     Route: 033
     Dates: start: 202402
  4. ESOMEPRAZOLE [Concomitant]
     Active Substance: ESOMEPRAZOLE
     Dosage: 20MG 1 TABLET ON EMPTY STOMACH
     Route: 048
  5. LEVOTHYROXINE [Concomitant]
     Active Substance: LEVOTHYROXINE\LEVOTHYROXINE SODIUM
     Dosage: 137 MG ON EMPTY STOMACH
     Route: 065
  6. LASIX [Concomitant]
     Active Substance: FUROSEMIDE
     Dosage: 2+2+2 (DETAILS NOT REPORTED)
     Route: 065
  7. ALDACTONE [Concomitant]
     Active Substance: SPIRONOLACTONE
     Dosage: 100MG, 1 (DETAILS NOT REPORTED)
     Route: 065
  8. METOLAZONE [Concomitant]
     Active Substance: METOLAZONE
     Dosage: 5MG 2 (DETAILS NOT REPORTED) PER DAY
     Route: 065
  9. DAPAGLIFLOZIN [Concomitant]
     Active Substance: DAPAGLIFLOZIN
     Dosage: 10MG 1 TABLET WITH BREAKFAST
     Route: 065
  10. LINAGLIPTIN [Concomitant]
     Active Substance: LINAGLIPTIN
     Dosage: 5MG, 1 TABLET AT LUNCH
     Route: 065
  11. APIXABAN [Concomitant]
     Active Substance: APIXABAN
     Dosage: 2.5MG, 2 TABLETS/DAY
     Route: 065
  12. NEPARVIS [Concomitant]
     Dosage: 2 TABLETS/DAY
     Route: 065
  13. ATORVASTATIN [Concomitant]
     Active Substance: ATORVASTATIN
     Dosage: 20MG 1 TABLET/DAY
     Route: 065
  14. PARICALCITOL [Concomitant]
     Active Substance: PARICALCITOL
     Dosage: 1 MCG, 1 TABLET EVERY OTHER DAY
     Route: 065
  15. Dulcolax [Concomitant]
     Dosage: 5MG, 1 TABLET/DAY
     Route: 065
  16. INSULIN HUMAN [Concomitant]
     Active Substance: INSULIN HUMAN
     Dosage: 25 (DETAILS NOT REPORTED), 3 TIMES A DAY 15 UNITS
     Route: 065
  17. SODIUM CHLORIDE [Concomitant]
     Active Substance: SODIUM CHLORIDE
     Dosage: 2+1 (DETAILS NOT REPORTED) PER DAY
     Route: 065
  18. DIORALYTE [Concomitant]
     Active Substance: CITRIC ACID MONOHYDRATE\DEXTROSE\POTASSIUM CATION\SODIUM CHLORIDE
     Dosage: 1 SACHET/DAY
     Route: 065
  19. MAGNESIUM [Concomitant]
     Active Substance: MAGNESIUM
     Dosage: 2 SACHETS/DAY
     Route: 065
  20. FOSFOMYCIN [Concomitant]
     Active Substance: FOSFOMYCIN
     Indication: Prophylaxis urinary tract infection
     Dosage: ONCE A WEEK
     Route: 065
  21. SODIUM PICOSULFATE [Concomitant]
     Active Substance: SODIUM PICOSULFATE
     Dosage: SOS
     Route: 065
  22. ALLOPURINOL [Concomitant]
     Active Substance: ALLOPURINOL
     Dosage: 100 (UNIT NOT REPORTED), 1 TABLET AT DINNER
     Route: 065
  23. BISOPROLOL [Concomitant]
     Active Substance: BISOPROLOL\BISOPROLOL FUMARATE
     Dosage: 2.5 MG, HALF TABLET WITH BREAKFAST
     Route: 065

REACTIONS (2)
  - Epididymitis [Unknown]
  - Hyponatraemia [Recovered/Resolved]
